FAERS Safety Report 23682436 (Version 1)
Quarter: 2024Q1

REPORT INFORMATION
  Report Type: Spontaneous
  Country: US (occurrence: None)
  Receive Date: 20240327
  Receipt Date: 20240327
  Transmission Date: 20240410
  Serious: Yes (Hospitalization)
  Sender: FDA-Public Use
  Company Number: None

PATIENT
  Sex: Female

DRUGS (2)
  1. KISQALI [Suspect]
     Active Substance: RIBOCICLIB
     Indication: Breast cancer
     Dosage: 600 MG : DAILY 21ON/7OFF ORAL?
     Route: 048
     Dates: start: 202312
  2. ANASTROZOLE [Suspect]
     Active Substance: ANASTROZOLE
     Indication: Breast cancer
     Dosage: 1 MG DAILY ORAL
     Route: 048
     Dates: start: 202312

REACTIONS (2)
  - Hepatic enzyme increased [None]
  - Therapy interrupted [None]
